FAERS Safety Report 7045790-7 (Version None)
Quarter: 2010Q4

REPORT INFORMATION
  Report Type: 
  Country: None (occurrence: None)
  Receive Date: 20101014
  Receipt Date: 20101005
  Transmission Date: 20110411
  Serious: Yes (Other)
  Sender: FDA-Public Use
  Company Number: DE-JNJFOC-20101001216

PATIENT
  Sex: Male
  Weight: 80 kg

DRUGS (2)
  1. RISPERDAL [Suspect]
     Indication: DELUSIONAL DISORDER, UNSPECIFIED TYPE
     Dosage: 2-0-3-0
     Route: 048
  2. RISPERDAL [Suspect]
     Dosage: 1-0-1-0
     Route: 048

REACTIONS (1)
  - VISUAL IMPAIRMENT [None]
